FAERS Safety Report 8965423 (Version 1)
Quarter: 2012Q4

REPORT INFORMATION
  Report Type: 
  Country: US (occurrence: US)
  Receive Date: 20121214
  Receipt Date: 20121214
  Transmission Date: 20130627
  Serious: Yes (Disabling)
  Sender: FDA-Public Use
  Company Number: US-PFIZER INC-2012316100

PATIENT
  Age: 50 Year
  Sex: Female
  Weight: 117.91 kg

DRUGS (13)
  1. NEURONTIN [Suspect]
     Indication: FIBROMYALGIA
     Dosage: 600 mg, 3x/day
     Route: 048
     Dates: start: 201106
  2. ZOLOFT [Suspect]
     Indication: DEPRESSION
     Dosage: 100 mg, 1x/day
     Route: 048
  3. CALAN [Concomitant]
     Indication: CONGESTIVE HEART FAILURE
     Dosage: UNK
  4. TOVIAZ [Concomitant]
     Indication: OVERACTIVE BLADDER
     Dosage: UNK
  5. WELLBUTRIN [Concomitant]
     Dosage: UNK
  6. ESTRATEST [Concomitant]
     Dosage: UNK
  7. ALDACTONE [Concomitant]
     Dosage: UNK
  8. PREVACID [Concomitant]
     Dosage: UNK
  9. SYNTHROID [Concomitant]
     Dosage: UNK
  10. SINEQUAN [Concomitant]
     Dosage: UNK
  11. REQUIP [Concomitant]
     Dosage: UNK
  12. ZANAFLEX [Concomitant]
     Dosage: UNK
  13. METHADONE [Concomitant]
     Dosage: UNK

REACTIONS (3)
  - Lumbar spinal stenosis [Unknown]
  - Fibromyalgia [Unknown]
  - Off label use [Unknown]
